FAERS Safety Report 15392842 (Version 2)
Quarter: 2018Q4

REPORT INFORMATION
  Report Type: Spontaneous
  Country: JP (occurrence: JP)
  Receive Date: 20180917
  Receipt Date: 20181010
  Transmission Date: 20190204
  Serious: Yes (Other)
  Sender: FDA-Public Use
  Company Number: JP-UCBSA-2018042015

PATIENT
  Age: 24 Year
  Sex: Female
  Weight: 41 kg

DRUGS (4)
  1. VIMPAT [Suspect]
     Active Substance: LACOSAMIDE
     Dosage: 150 MG, ONCE DAILY (QD)
     Route: 048
     Dates: start: 20171021, end: 20171124
  2. VIMPAT [Suspect]
     Active Substance: LACOSAMIDE
     Indication: EPILEPSY
     Dosage: 50 MG, 2X/DAY (BID)
     Route: 048
     Dates: start: 20171014, end: 20171020
  3. VIMPAT [Suspect]
     Active Substance: LACOSAMIDE
     Dosage: 250 MG, ONCE DAILY (QD)
     Route: 048
     Dates: start: 20180127, end: 20180831
  4. VIMPAT [Suspect]
     Active Substance: LACOSAMIDE
     Dosage: 100 MG, 2X/DAY (BID)
     Route: 048
     Dates: start: 20171125, end: 20180126

REACTIONS (2)
  - Thrombocytopenia [Unknown]
  - Off label use [Unknown]

NARRATIVE: CASE EVENT DATE: 20171021
